FAERS Safety Report 4718798-1 (Version None)
Quarter: 2005Q3

REPORT INFORMATION
  Report Type: 
  Country: None (occurrence: None)
  Receive Date: 20050719
  Receipt Date: 20050705
  Transmission Date: 20060218
  Serious: Yes (Other)
  Sender: FDA-Public Use
  Company Number: USA0507101965

PATIENT
  Age: 56 Year
  Sex: Female

DRUGS (2)
  1. FORTEO [Suspect]
     Indication: OSTEOPOROSIS
     Dates: start: 20040801
  2. CALTRATE 600 PLUS VITAMIN D [Concomitant]

REACTIONS (8)
  - BACK PAIN [None]
  - CONTUSION [None]
  - INJECTION SITE HAEMORRHAGE [None]
  - LOWER EXTREMITY MASS [None]
  - MASS [None]
  - PHARMACEUTICAL PRODUCT COMPLAINT [None]
  - SCAR [None]
  - SURGERY [None]
